FAERS Safety Report 18860178 (Version 2)
Quarter: 2021Q1

REPORT INFORMATION
  Report Type: Spontaneous
  Country: DE (occurrence: DE)
  Receive Date: 20210208
  Receipt Date: 20210304
  Transmission Date: 20210420
  Serious: Yes (Other)
  Sender: FDA-Public Use
  Company Number: DE-EPICPHARMA-DE-2021EPCLIT00125

PATIENT
  Age: 6 Month
  Sex: Male

DRUGS (1)
  1. METFORMIN HYDROCHLORIDE. [Suspect]
     Active Substance: METFORMIN HYDROCHLORIDE
     Indication: DONOHUE SYNDROME
     Route: 065

REACTIONS (5)
  - Skin haemorrhage [Recovered/Resolved]
  - Haematuria [Recovered/Resolved]
  - Drug ineffective for unapproved indication [Unknown]
  - Hepatic failure [Recovered/Resolved]
  - Haematochezia [Recovered/Resolved]
